FAERS Safety Report 18724347 (Version 1)
Quarter: 2021Q1

REPORT INFORMATION
  Report Type: Spontaneous
  Country: US (occurrence: US)
  Receive Date: 20210111
  Receipt Date: 20210111
  Transmission Date: 20210419
  Serious: No
  Sender: FDA-Public Use
  Company Number: US-PFIZER INC-2021008598

PATIENT
  Age: 74 Year
  Sex: Female

DRUGS (1)
  1. ADVIL LIQUI?GELS [Suspect]
     Active Substance: IBUPROFEN
     Dosage: 2 DF AT A TIME EVERY 2 HOURS

REACTIONS (5)
  - Expired product administered [Unknown]
  - Intentional overdose [Unknown]
  - Drug ineffective [Unknown]
  - Abdominal distension [Unknown]
  - Herpes zoster [Unknown]

NARRATIVE: CASE EVENT DATE: 20210105
